FAERS Safety Report 17135378 (Version 3)
Quarter: 2020Q3

REPORT INFORMATION
  Report Type: Spontaneous
  Country: US (occurrence: US)
  Receive Date: 20191210
  Receipt Date: 20200930
  Transmission Date: 20201102
  Serious: No
  Sender: FDA-Public Use
  Company Number: US-PFIZER INC-2019533759

PATIENT
  Age: 67 Year
  Sex: Male

DRUGS (1)
  1. XELJANZ XR [Suspect]
     Active Substance: TOFACITINIB CITRATE
     Dosage: 11 MG
     Dates: start: 201911

REACTIONS (4)
  - Neck pain [Unknown]
  - Drug ineffective [Unknown]
  - Nasopharyngitis [Unknown]
  - Pain in extremity [Unknown]
